FAERS Safety Report 4486819-X (Version None)
Quarter: 2004Q4

REPORT INFORMATION
  Report Type: 
  Country: None (occurrence: None)
  Receive Date: 20041027
  Receipt Date: 20041019
  Transmission Date: 20050328
  Serious: Yes (Life-Threatening, Hospitalization, Disabling, Other)
  Sender: FDA-Public Use
  Company Number: US-MERCK-0410USA02906

PATIENT
  Age: 76 Year
  Sex: Female

DRUGS (4)
  1. VIOXX [Suspect]
     Indication: BACK PAIN
     Route: 048
     Dates: start: 20020101, end: 20040701
  2. VIOXX [Suspect]
     Indication: ABDOMINAL PAIN UPPER
     Route: 048
     Dates: start: 20020101, end: 20040701
  3. ANALGESIC OR ANESTHETIC (UNSPECIFIED) [Concomitant]
     Route: 065
  4. [THERAPY UNSPECIFIED] [Concomitant]
     Route: 065

REACTIONS (9)
  - ANOREXIA [None]
  - BLOOD PRESSURE INCREASED [None]
  - HAEMORRHAGE [None]
  - HEART RATE INCREASED [None]
  - MIDDLE INSOMNIA [None]
  - POLYP [None]
  - POLYPECTOMY [None]
  - SUFFOCATION FEELING [None]
  - WEIGHT DECREASED [None]
